FAERS Safety Report 8460870-7 (Version None)
Quarter: 2012Q2

REPORT INFORMATION
  Report Type: 
  Country: None (occurrence: None)
  Receive Date: 20120625
  Receipt Date: 20120619
  Transmission Date: 20120825
  Serious: Yes (Hospitalization)
  Sender: FDA-Public Use
  Company Number: US-AMGEN-USASP2012038401

PATIENT
  Sex: Female

DRUGS (11)
  1. SIMVASTATIN [Concomitant]
     Dosage: 1 MG, QD
  2. L-THYROXINE                        /00068001/ [Concomitant]
     Dosage: 1 MUG, QD
  3. PROLIA [Suspect]
     Indication: OSTEOPOROSIS POSTMENOPAUSAL
     Dates: start: 20120306
  4. POTASSIUM CHLORIDE [Concomitant]
     Dosage: 4 MEQ, QD
  5. COREG [Concomitant]
     Dosage: 2 MG, QD
  6. AMBIEN [Concomitant]
     Dosage: 1 MG, QD
  7. CALCIUM D                          /01272001/ [Concomitant]
     Dosage: 2 MG, QD
  8. FERROUS GLUCONATE [Concomitant]
     Dosage: 1 MG, QD
  9. NEXIUM [Concomitant]
     Dosage: 1 MG, BID
  10. HYDROCHLOROTHIAZIDE [Concomitant]
     Dosage: 1 MG, QD
  11. TUMS                               /00193601/ [Concomitant]
     Dosage: UNK UNK, QD

REACTIONS (6)
  - BACK PAIN [None]
  - NERVE COMPRESSION [None]
  - HYPOKALAEMIA [None]
  - EAR PAIN [None]
  - CHEST PAIN [None]
  - SINUS CONGESTION [None]
